FAERS Safety Report 6236971-0 (Version None)
Quarter: 2009Q2

REPORT INFORMATION
  Report Type: 
  Country: None (occurrence: None)
  Receive Date: 20090619
  Receipt Date: 20090303
  Transmission Date: 20091009
  Serious: No
  Sender: FDA-Public Use
  Company Number: US-ASTRAZENECA-2009UW05817

PATIENT
  Age: 25640 Day
  Sex: Female
  Weight: 60.3 kg

DRUGS (1)
  1. SYMBICORT [Suspect]
     Indication: ASTHMA
     Dosage: 90/4.5 MCG 2 PUFFS IN AM AND 2 PUFFS IN PM
     Route: 055
     Dates: start: 20090302, end: 20090303

REACTIONS (1)
  - FACE OEDEMA [None]
